FAERS Safety Report 19160478 (Version 1)
Quarter: 2021Q2

REPORT INFORMATION
  Report Type: Spontaneous
  Country: US (occurrence: US)
  Receive Date: 20210420
  Receipt Date: 20210420
  Transmission Date: 20210717
  Serious: Yes (Hospitalization, Other)
  Sender: FDA-Public Use
  Company Number: US-SA-2017SA105826

PATIENT
  Age: 51 Year
  Sex: Female

DRUGS (5)
  1. CAPRELSA [Suspect]
     Active Substance: VANDETANIB
     Dosage: 300 MG, QD
     Route: 048
     Dates: start: 20170505
  2. CAPRELSA [Suspect]
     Active Substance: VANDETANIB
     Indication: THYROID CANCER
     Dosage: 300 MG, QD
     Route: 048
     Dates: start: 20170301
  3. CAPRELSA [Suspect]
     Active Substance: VANDETANIB
     Dosage: 300 MG, QD
     Route: 048
     Dates: start: 20170310
  4. CAPRELSA [Suspect]
     Active Substance: VANDETANIB
     Dosage: 300 MG,QD
     Route: 048
     Dates: start: 20170508
  5. CAPRELSA [Suspect]
     Active Substance: VANDETANIB
     Dosage: 300 MG,QD
     Route: 048
     Dates: start: 20170508

REACTIONS (36)
  - Abdominal discomfort [Unknown]
  - Hypersensitivity [Unknown]
  - Pneumonia [Unknown]
  - Cold sweat [Unknown]
  - Hyperhidrosis [Unknown]
  - Irritability [Unknown]
  - Sunburn [Unknown]
  - Nausea [Unknown]
  - Retching [Not Recovered/Not Resolved]
  - Vaginal haemorrhage [Unknown]
  - Cough [Unknown]
  - Headache [Unknown]
  - Endometrial ablation [Unknown]
  - Blood iron decreased [Unknown]
  - Ear discomfort [Unknown]
  - Rash [Unknown]
  - Nasopharyngitis [Recovering/Resolving]
  - Oropharyngeal pain [Unknown]
  - Urticaria [Unknown]
  - Alopecia [Unknown]
  - Cough [Not Recovered/Not Resolved]
  - Hospitalisation [Unknown]
  - Ageusia [Unknown]
  - Uterine leiomyoma [Unknown]
  - Acne [Unknown]
  - Eye discharge [Unknown]
  - Productive cough [Not Recovered/Not Resolved]
  - Dyspnoea [Unknown]
  - Vomiting [Recovered/Resolved]
  - Pruritus [Unknown]
  - Fatigue [Unknown]
  - Thrombosis [Unknown]
  - Oligomenorrhoea [Unknown]
  - Hot flush [Unknown]
  - Onychoclasis [Unknown]
  - Diarrhoea [Unknown]

NARRATIVE: CASE EVENT DATE: 2017
